FAERS Safety Report 21869668 (Version 5)
Quarter: 2023Q2

REPORT INFORMATION
  Report Type: Spontaneous
  Country: CA (occurrence: CA)
  Receive Date: 20230117
  Receipt Date: 20230417
  Transmission Date: 20230722
  Serious: Yes (Other)
  Sender: FDA-Public Use
  Company Number: CA-CELLTRION INC.-2023CA000839

PATIENT

DRUGS (4)
  1. INFLECTRA [Suspect]
     Active Substance: INFLIXIMAB-DYYB
     Indication: Crohn^s disease
     Dosage: 300 MG,INDUCTION AT Q 0,2,6 THEN EVERY 8 WEEKS
     Route: 042
     Dates: start: 20221123, end: 20230107
  2. INFLECTRA [Suspect]
     Active Substance: INFLIXIMAB-DYYB
     Dosage: 300 MG,INDUCTION AT Q 0,2,6 THEN EVERY 8 WEEKS
     Route: 042
     Dates: start: 20230107
  3. INFLECTRA [Suspect]
     Active Substance: INFLIXIMAB-DYYB
     Dosage: 700 MG STAT DOSE. (Q4 WEEKS) INFUSION WAS CANCELLED
     Route: 042
     Dates: start: 20230131
  4. PREDNISONE [Concomitant]
     Active Substance: PREDNISONE
     Dosage: 1 DF,UNKNOWN DOSE
     Route: 065
     Dates: start: 20221019

REACTIONS (9)
  - Muscle spasms [Recovered/Resolved]
  - Chest pain [Recovered/Resolved]
  - Drug specific antibody present [Unknown]
  - Off label use [Unknown]
  - Off label use [Unknown]
  - Incorrect dose administered [Unknown]
  - Infusion related reaction [Not Recovered/Not Resolved]
  - Muscle spasms [Recovered/Resolved]
  - Flushing [Recovered/Resolved]

NARRATIVE: CASE EVENT DATE: 20230107
